FAERS Safety Report 20430191 (Version 1)
Quarter: 2022Q1

REPORT INFORMATION
  Report Type: Report from Study
  Country: US (occurrence: US)
  Receive Date: 20220204
  Receipt Date: 20220204
  Transmission Date: 20220423
  Serious: Yes (Life-Threatening, Hospitalization)
  Sender: FDA-Public Use
  Company Number: US-SERVIER-S19014600

PATIENT

DRUGS (8)
  1. ONCASPAR [Suspect]
     Active Substance: PEGASPARGASE
     Indication: Acute lymphocytic leukaemia
     Dosage: 2500 IU/M2, EVERY 2 WEEKS
     Route: 042
     Dates: start: 20190603, end: 20200102
  2. VINCRISTINE [Suspect]
     Active Substance: VINCRISTINE
     Indication: T-cell type acute leukaemia
     Dosage: 2 MG/M2, EVERY 3 WEEKS
     Route: 042
     Dates: start: 20190601, end: 20191205
  3. DEXAMETHASONE [Suspect]
     Active Substance: DEXAMETHASONE
     Indication: T-cell type acute leukaemia
     Dosage: 18 MG/M2, DAYS 1-5 OF EACH 3-WEEK CYCLE
     Route: 048
     Dates: start: 20191111, end: 20191209
  4. MERCAPTOPURINE [Suspect]
     Active Substance: MERCAPTOPURINE
     Indication: T-cell type acute leukaemia
     Dosage: 50 MG/M2, DAYS 1-14 OF EACH 3-WEEK CYCLE
     Route: 048
     Dates: start: 20190628, end: 20191218
  5. DOXORUBICIN [Suspect]
     Active Substance: DOXORUBICIN
     Indication: T-cell type acute leukaemia
     Dosage: 30 MG/M2? DAY 1 OF EACH 3-WEEK CYCLE FOR 8 CYCLES
     Route: 042
     Dates: start: 20191111, end: 20191205
  6. DEXRAZOXANE [Suspect]
     Active Substance: DEXRAZOXANE
     Indication: T-cell type acute leukaemia
     Dosage: 300 MG/M2, DAY 1 OF EACH 3-WEEK CYCLE FOR 8 CYCLES
     Route: 042
     Dates: start: 20191111, end: 20191205
  7. METHOTREXATE [Suspect]
     Active Substance: METHOTREXATE
     Indication: T-cell type acute leukaemia
     Dosage: 8 MG, EVERY 9 WEEKS
     Route: 037
     Dates: start: 20190628, end: 20191227
  8. CYTARABINE [Suspect]
     Active Substance: CYTARABINE
     Indication: T-cell type acute leukaemia
     Dosage: 20 MG, EVERY 9 WEEKS
     Route: 037
     Dates: start: 20190531, end: 20191227

REACTIONS (1)
  - Pneumocystis jirovecii pneumonia [Recovering/Resolving]

NARRATIVE: CASE EVENT DATE: 20191223
